FAERS Safety Report 23624093 (Version 2)
Quarter: 2025Q3

REPORT INFORMATION
  Report Type: Spontaneous
  Country: CA (occurrence: CA)
  Receive Date: 20240312
  Receipt Date: 20250723
  Transmission Date: 20251021
  Serious: Yes (Other)
  Sender: BAUSCH AND LOMB
  Company Number: CA-BAUSCH-BL-2024-003625

PATIENT
  Age: 79 Year
  Sex: Female
  Weight: 73.03 kg

DRUGS (3)
  1. EFUDEX [Suspect]
     Active Substance: FLUOROURACIL
     Indication: Skin lesion
     Route: 061
     Dates: start: 202402, end: 20240229
  2. FLUOROURACIL [Suspect]
     Active Substance: FLUOROURACIL
     Indication: Skin lesion
     Route: 061
  3. TYLENOL [Concomitant]
     Active Substance: ACETAMINOPHEN
     Indication: Product used for unknown indication
     Route: 048

REACTIONS (10)
  - Hypertension [Recovering/Resolving]
  - Vertigo [Not Recovered/Not Resolved]
  - Muscular weakness [Unknown]
  - Dizziness [Recovering/Resolving]
  - Speech disorder [Unknown]
  - Skin weeping [Unknown]
  - Skin irritation [Unknown]
  - Ear congestion [Unknown]
  - Headache [Unknown]
  - Appetite disorder [Unknown]
